FAERS Safety Report 10262820 (Version 1)
Quarter: 2014Q2

REPORT INFORMATION
  Report Type: Spontaneous
  Country: US (occurrence: US)
  Receive Date: 20140626
  Receipt Date: 20140626
  Transmission Date: 20141212
  Serious: No
  Sender: FDA-Public Use
  Company Number: US-MYLANLABS-2013S1017892

PATIENT
  Sex: 0

DRUGS (5)
  1. CLOZAPINE [Suspect]
     Indication: SCHIZOPHRENIA
     Route: 048
     Dates: start: 20120420, end: 201306
  2. CLOZAPINE [Suspect]
     Indication: SCHIZOPHRENIA
     Route: 048
     Dates: start: 20120420, end: 201306
  3. CLOZAPINE [Suspect]
     Indication: SCHIZOPHRENIA
     Route: 048
     Dates: start: 20130420, end: 201306
  4. CLOZAPINE [Suspect]
     Indication: SCHIZOPHRENIA
     Dates: start: 201306
  5. CLOZAPINE [Suspect]
     Indication: SCHIZOPHRENIA
     Dates: start: 201306

REACTIONS (1)
  - Antipsychotic drug level above therapeutic [Not Recovered/Not Resolved]
